FAERS Safety Report 14352864 (Version 1)
Quarter: 2018Q1

REPORT INFORMATION
  Report Type: Report from Study
  Country: US (occurrence: US)
  Receive Date: 20180104
  Receipt Date: 20180104
  Transmission Date: 20180509
  Serious: Yes (Hospitalization)
  Sender: FDA-Public Use
  Company Number: US-THERATECHNOLOGIES, INC.-TH-2017-00406

PATIENT

DRUGS (8)
  1. OXYCODONE [Concomitant]
     Active Substance: OXYCODONE
     Indication: BURSITIS
     Dosage: 5 MG MILLIGRAM(S), PRN QID
     Route: 048
     Dates: start: 20160128
  2. NO STUDY MEDICATION [Suspect]
     Active Substance: UNSPECIFIED INGREDIENT
  3. ZOLPIDEM [Concomitant]
     Active Substance: ZOLPIDEM\ZOLPIDEM TARTRATE
     Indication: INSOMNIA
     Dosage: 5 MG MILLIGRAM(S), PRN QD
     Dates: start: 20110602
  4. ATORVASTATIN [Concomitant]
     Active Substance: ATORVASTATIN
     Indication: HYPERLIPIDAEMIA
     Dosage: 20 MG MILLIGRAM(S), QD
     Route: 048
     Dates: start: 20150708
  5. TAMSULOSIN [Concomitant]
     Active Substance: TAMSULOSIN
     Indication: PROSTATE CANCER
     Dosage: 0.4 MG MILLIGRAM(S), QD
     Route: 048
     Dates: start: 20160322
  6. FINASTERIDE. [Concomitant]
     Active Substance: FINASTERIDE
     Indication: PROSTATE CANCER
     Dosage: 5 MG MILLIGRAM(S), QD
     Dates: start: 20160818
  7. ACETAMINOPHEN. [Concomitant]
     Active Substance: ACETAMINOPHEN
     Indication: PAIN
     Dosage: 325 MG MILLIGRAM(S), PRN
     Route: 048
     Dates: start: 20170824
  8. EMTRICITABINE W/RILPIVIRINE/TENOFOVIR [Concomitant]
     Active Substance: EMTRICITABINE\RILPIVIRINE\TENOFOVIR DISOPROXIL FUMARATE
     Indication: HIV INFECTION
     Dosage: 1 TAB, QD
     Route: 048
     Dates: start: 20160930

REACTIONS (2)
  - Prostate cancer [Recovered/Resolved]
  - Condition aggravated [Recovered/Resolved]

NARRATIVE: CASE EVENT DATE: 20170824
